FAERS Safety Report 4566184-X (Version None)
Quarter: 2005Q1

REPORT INFORMATION
  Report Type: 
  Country: None (occurrence: None)
  Receive Date: 20050201
  Receipt Date: 20050124
  Transmission Date: 20050727
  Serious: Yes (Other)
  Sender: FDA-Public Use
  Company Number: FR-JNJFOC-20050102917

PATIENT
  Age: 47 Year
  Sex: Male
  Weight: 75 kg

DRUGS (13)
  1. REMICADE [Suspect]
     Dosage: 15TH INFUSION
     Route: 042
  2. REMICADE [Suspect]
     Dosage: 14TH INFUSION
     Route: 042
  3. REMICADE [Suspect]
     Dosage: 5TH INFUSION
     Route: 042
  4. REMICADE [Suspect]
     Dosage: 4TH INFUSION
     Route: 042
  5. REMICADE [Suspect]
     Dosage: 3RD INFUSION
     Route: 042
  6. REMICADE [Suspect]
     Dosage: 2ND INFUSION
     Route: 042
  7. REMICADE [Suspect]
     Indication: RHEUMATOID ARTHRITIS
     Route: 042
  8. CORTANCYL [Concomitant]
     Indication: RHEUMATOID ARTHRITIS
     Route: 049
  9. NOVATREX [Concomitant]
     Indication: RHEUMATOID ARTHRITIS
     Route: 049
  10. ACTONEL [Concomitant]
     Route: 049
  11. CACIT D3 [Concomitant]
     Route: 049
  12. CACIT D3 [Concomitant]
     Route: 049
  13. DEROXAT [Concomitant]
     Route: 049

REACTIONS (2)
  - FUNGAL INFECTION [None]
  - PSORIASIS [None]
